FAERS Safety Report 8247048-7 (Version None)
Quarter: 2012Q1

REPORT INFORMATION
  Report Type: 
  Country: None (occurrence: None)
  Receive Date: 20120330
  Receipt Date: 20120315
  Transmission Date: 20120608
  Serious: Yes (Hospitalization)
  Sender: FDA-Public Use
  Company Number: DE-ROCHE-1047447

PATIENT
  Age: 65 Year
  Sex: Male
  Weight: 84.6 kg

DRUGS (2)
  1. VEMURAFENIB [Suspect]
     Indication: MALIGNANT MELANOMA
     Dosage: FORM: DRUGS
     Route: 048
     Dates: start: 20120201, end: 20120305
  2. VEMURAFENIB [Suspect]
     Route: 048
     Dates: start: 20120317

REACTIONS (1)
  - DERMATITIS EXFOLIATIVE [None]
